FAERS Safety Report 11498094 (Version 2)
Quarter: 2015Q4

REPORT INFORMATION
  Report Type: Report from Study
  Country: US (occurrence: US)
  Receive Date: 20150911
  Receipt Date: 20151002
  Transmission Date: 20160304
  Serious: Yes (Other)
  Sender: FDA-Public Use
  Company Number: US-TAKEDA-2015TUS012101

PATIENT
  Age: 48 Year
  Sex: Female

DRUGS (1)
  1. NALTREXONE, BUPROPION [Suspect]
     Active Substance: BUPROPION HYDROCHLORIDE\NALTREXONE HYDROCHLORIDE
     Indication: PRODUCT USED FOR UNKNOWN INDICATION
     Dosage: 8/90 MG,UNK
     Route: 065
     Dates: start: 20150824, end: 20150831

REACTIONS (8)
  - Abdominal pain [Unknown]
  - Intestinal obstruction [Unknown]
  - Dysphagia [Unknown]
  - Suicidal ideation [Unknown]
  - Heat stroke [Unknown]
  - Nausea [Unknown]
  - Headache [Unknown]
  - Migraine [Unknown]
